FAERS Safety Report 5977196-3 (Version None)
Quarter: 2008Q4

REPORT INFORMATION
  Report Type: 
  Country: None (occurrence: None)
  Receive Date: 20081203
  Receipt Date: 20081125
  Transmission Date: 20090506
  Serious: Yes (Hospitalization)
  Sender: FDA-Public Use
  Company Number: US-BIOGENIDEC-2008BI025197

PATIENT
  Age: 51 Year
  Sex: Female
  Weight: 73 kg

DRUGS (1)
  1. TYSABRI [Suspect]
     Indication: MULTIPLE SCLEROSIS
     Route: 042
     Dates: start: 20060925

REACTIONS (6)
  - ASTHENIA [None]
  - DISLOCATION OF VERTEBRA [None]
  - INTERVERTEBRAL DISC PROTRUSION [None]
  - NEURALGIA [None]
  - PARAESTHESIA [None]
  - SURGERY [None]
